FAERS Safety Report 22078825 (Version 1)
Quarter: 2023Q1

REPORT INFORMATION
  Report Type: Spontaneous
  Country: AU (occurrence: AU)
  Receive Date: 20230309
  Receipt Date: 20230309
  Transmission Date: 20230418
  Serious: Yes (Hospitalization, Other)
  Sender: FDA-Public Use
  Company Number: AU-ABBVIE-4149963

PATIENT
  Age: 68 Year
  Sex: Male

DRUGS (9)
  1. ADALIMUMAB [Suspect]
     Active Substance: ADALIMUMAB
     Indication: Psoriatic arthropathy
     Route: 058
     Dates: start: 201207
  2. ADALIMUMAB [Suspect]
     Active Substance: ADALIMUMAB
     Route: 058
  3. ADALIMUMAB [Suspect]
     Active Substance: ADALIMUMAB
     Route: 058
  4. SULFASALAZINE [Suspect]
     Active Substance: SULFASALAZINE
     Indication: Product used for unknown indication
     Route: 065
  5. METHOTREXATE [Suspect]
     Active Substance: METHOTREXATE
     Indication: Product used for unknown indication
  6. METHOTREXATE [Suspect]
     Active Substance: METHOTREXATE
     Indication: Product used for unknown indication
     Route: 065
  7. METHOTREXATE [Suspect]
     Active Substance: METHOTREXATE
     Indication: Product used for unknown indication
  8. Hyrimoz(Adalimumab) [Concomitant]
     Indication: Product used for unknown indication
     Route: 065
  9. SECUKINUMAB [Concomitant]
     Active Substance: SECUKINUMAB
     Indication: Product used for unknown indication
     Route: 065

REACTIONS (27)
  - Chronic inflammatory demyelinating polyradiculoneuropathy [Unknown]
  - Psoriasis [Not Recovered/Not Resolved]
  - Pseudomonas infection [Unknown]
  - Cellulitis [Unknown]
  - Lower respiratory tract infection [Unknown]
  - Osteomyelitis [Unknown]
  - Peripheral sensorimotor neuropathy [Unknown]
  - Chikungunya virus infection [Unknown]
  - Dengue fever [Unknown]
  - Dactylitis [Unknown]
  - Enthesopathy [Unknown]
  - Sepsis [Unknown]
  - Epidemic polyarthritis [Unknown]
  - Arthropathy [Unknown]
  - Cholecystectomy [Unknown]
  - Urinary tract infection [Unknown]
  - Urethral stenosis [Unknown]
  - Toe amputation [Unknown]
  - Benign prostatic hyperplasia [Unknown]
  - Lower respiratory tract infection [Unknown]
  - Skin infection [Unknown]
  - Bladder outlet obstruction [Unknown]
  - Viral infection [Unknown]
  - Pain in extremity [Unknown]
  - Joint swelling [Unknown]
  - Arthralgia [Unknown]
  - Peripheral swelling [Unknown]
